FAERS Safety Report 7343845-0 (Version None)
Quarter: 2011Q1

REPORT INFORMATION
  Report Type: 
  Country: None (occurrence: None)
  Receive Date: 20110310
  Receipt Date: 20110303
  Transmission Date: 20110831
  Serious: Yes (Hospitalization)
  Sender: FDA-Public Use
  Company Number: DE-ROCHE-761198

PATIENT
  Sex: Male
  Weight: 75 kg

DRUGS (3)
  1. INTERFERON [Suspect]
     Dosage: LAST APPLICATION PRIOR TO EVENT WAS ON 2-FEB-2011
     Route: 058
     Dates: start: 20110203
  2. BEVACIZUMAB [Suspect]
     Indication: METASTATIC RENAL CELL CARCINOMA
     Dosage: LAST APPLICATION PRIOR TO EVENT WAS ON 2-FEB-2011
     Route: 042
     Dates: start: 20100520
  3. INTERFERON [Suspect]
     Indication: METASTATIC RENAL CELL CARCINOMA
     Dosage: LAST APPLICATION PRIOR TO EVENT WAS ON 27 AUG 2010.
     Route: 058
     Dates: start: 20100520

REACTIONS (4)
  - HYPONATRAEMIA [None]
  - CONFUSIONAL STATE [None]
  - HYPERKALAEMIA [None]
  - HYPERTENSION [None]
